FAERS Safety Report 22613058 (Version 1)
Quarter: 2023Q2

REPORT INFORMATION
  Report Type: Spontaneous
  Country: US (occurrence: US)
  Receive Date: 20230618
  Receipt Date: 20230618
  Transmission Date: 20230722
  Serious: No
  Sender: FDA-Public Use
  Company Number: US-LANTHEUS-LMI-2023-00517

PATIENT
  Age: 73 Year
  Sex: Male

DRUGS (1)
  1. PYLARIFY [Suspect]
     Active Substance: PIFLUFOLASTAT F-18
     Indication: Scan
     Dosage: 10.3 MILLICURIE; WITH A RESIDUAL OF 0.6
     Route: 042
     Dates: start: 20230427, end: 20230427

REACTIONS (7)
  - Vomiting projectile [Unknown]
  - Diarrhoea [Unknown]
  - Chills [Unknown]
  - Cold sweat [Unknown]
  - Chest pain [Unknown]
  - Oedema peripheral [Unknown]
  - Abdominal pain [Unknown]
